FAERS Safety Report 22315052 (Version 1)
Quarter: 2023Q2

REPORT INFORMATION
  Report Type: Spontaneous
  Country: AU (occurrence: AU)
  Receive Date: 20230512
  Receipt Date: 20230512
  Transmission Date: 20230722
  Serious: Yes (Life-Threatening, Other)
  Sender: FDA-Public Use
  Company Number: AU-GE HEALTHCARE-2023CSU001312

PATIENT
  Age: 64 Year
  Sex: Male
  Weight: 120 kg

DRUGS (6)
  1. VISIPAQUE [Suspect]
     Active Substance: IODIXANOL
     Indication: Angiogram
     Dosage: UNK, SINGLE
     Route: 013
     Dates: start: 20230223, end: 20230223
  2. VISIPAQUE [Suspect]
     Active Substance: IODIXANOL
     Indication: Angiogram
  3. VISIPAQUE [Suspect]
     Active Substance: IODIXANOL
     Indication: Aneurysm repair
  4. VISIPAQUE [Suspect]
     Active Substance: IODIXANOL
     Indication: Intracranial aneurysm
  5. ASPIRIN [Concomitant]
     Active Substance: ASPIRIN
     Indication: Antiplatelet therapy
     Dosage: 100 MG, DAILY VIA NASOGASTRIC TUBE
     Route: 050
     Dates: start: 20230220
  6. CLOPIDOGREL [Concomitant]
     Active Substance: CLOPIDOGREL BISULFATE
     Indication: Antiplatelet therapy
     Dosage: 75MG DAILY, VIA NASOGASTRIC TUBE
     Route: 050
     Dates: start: 20230220

REACTIONS (2)
  - Status epilepticus [Unknown]
  - Contrast encephalopathy [Not Recovered/Not Resolved]

NARRATIVE: CASE EVENT DATE: 20230223
